FAERS Safety Report 9227235 (Version 1)
Quarter: 2013Q2

REPORT INFORMATION
  Report Type: Spontaneous
  Country: US (occurrence: None)
  Receive Date: 20130410
  Receipt Date: 20130410
  Transmission Date: 20140414
  Serious: Yes (Death)
  Sender: FDA-Public Use
  Company Number: AE-SPE-2013-010

PATIENT
  Age: 77 Year
  Sex: Female

DRUGS (1)
  1. MEIACT MS [Suspect]
     Route: 048
     Dates: start: 201101, end: 201102

REACTIONS (3)
  - Drug-induced liver injury [None]
  - Renal failure acute [None]
  - Respiratory failure [None]
